FAERS Safety Report 5748317-2 (Version None)
Quarter: 2008Q2

REPORT INFORMATION
  Report Type: 
  Country: None (occurrence: None)
  Receive Date: 20080523
  Receipt Date: 20080514
  Transmission Date: 20081010
  Serious: Yes (Other)
  Sender: FDA-Public Use
  Company Number: FR-PFIZER INC-2008018636

PATIENT
  Sex: Female
  Weight: 62 kg

DRUGS (5)
  1. LYRICA [Suspect]
     Indication: NEURALGIA
     Dosage: DAILY DOSE:50MG
     Route: 048
     Dates: start: 20080125, end: 20080203
  2. IMOVANE [Concomitant]
  3. SEROPRAM [Concomitant]
  4. TRAMADOL HCL [Concomitant]
     Route: 048
  5. NOCTAMID [Concomitant]
     Route: 048

REACTIONS (5)
  - ABNORMAL BEHAVIOUR [None]
  - AMNESIA [None]
  - HALLUCINATION [None]
  - NAUSEA [None]
  - VOMITING [None]
